FAERS Safety Report 6059411-3 (Version None)
Quarter: 2009Q1

REPORT INFORMATION
  Report Type: 
  Country: None (occurrence: None)
  Receive Date: 20090130
  Receipt Date: 20090119
  Transmission Date: 20090719
  Serious: Yes (Hospitalization)
  Sender: FDA-Public Use
  Company Number: FR-ELI_LILLY_AND_COMPANY-FR200901002918

PATIENT
  Sex: Male

DRUGS (4)
  1. GEMZAR [Suspect]
     Indication: LUNG CANCER METASTATIC
     Dosage: 2100 MG, UNKNOWN
     Route: 042
     Dates: start: 20080820
  2. AVASTIN [Concomitant]
     Indication: LUNG CANCER METASTATIC
     Dosage: 456 MG/CYCLE
     Route: 042
     Dates: start: 20081023, end: 20081023
  3. TARCEVA [Concomitant]
     Indication: LUNG CANCER METASTATIC
     Dosage: 150 MG
     Route: 048
     Dates: start: 20080820
  4. CISPLATYL [Concomitant]
     Indication: LUNG CANCER METASTATIC
     Dosage: 170 MG/CYCLE
     Route: 042
     Dates: start: 20080820

REACTIONS (3)
  - HEADACHE [None]
  - MONOPARESIS [None]
  - TONIC CONVULSION [None]
